FAERS Safety Report 7256636-6 (Version None)
Quarter: 2011Q1

REPORT INFORMATION
  Report Type: 
  Country: None (occurrence: None)
  Receive Date: 20110129
  Receipt Date: 20100805
  Transmission Date: 20110831
  Serious: No
  Sender: FDA-Public Use
  Company Number: US-ABBOTT-10P-163-0662531-00

PATIENT
  Sex: Female
  Weight: 57.204 kg

DRUGS (8)
  1. VITAMIN D [Concomitant]
     Indication: VITAMIN SUPPLEMENTATION
  2. GLUCOSAMINE CHONDROITIN [Concomitant]
     Indication: SUPPLEMENTATION THERAPY
  3. ACTONEL [Concomitant]
     Indication: OSTEOPOROSIS
  4. HUMIRA [Suspect]
     Indication: RHEUMATOID ARTHRITIS
     Dosage: 3 SHOTS TOTAL
     Dates: start: 20100601, end: 20100728
  5. LOVAZA [Concomitant]
     Indication: SUPPLEMENTATION THERAPY
  6. TUMERIC [Concomitant]
     Indication: SUPPLEMENTATION THERAPY
  7. PREMARIN [Concomitant]
     Indication: HORMONE REPLACEMENT THERAPY
  8. VICODIN [Concomitant]
     Indication: RHEUMATOID ARTHRITIS

REACTIONS (1)
  - ALOPECIA [None]
